FAERS Safety Report 23133293 (Version 1)
Quarter: 2023Q4

REPORT INFORMATION
  Report Type: Spontaneous
  Country: JP (occurrence: JP)
  Receive Date: 20231101
  Receipt Date: 20231101
  Transmission Date: 20240110
  Serious: Yes (Hospitalization, Other)
  Sender: FDA-Public Use
  Company Number: JP-BRISTOL-MYERS SQUIBB COMPANY-2023-153344

PATIENT
  Age: 7 Decade
  Sex: Female

DRUGS (2)
  1. YERVOY [Suspect]
     Active Substance: IPILIMUMAB
     Indication: Malignant melanoma
  2. OPDIVO [Suspect]
     Active Substance: NIVOLUMAB
     Indication: Malignant melanoma

REACTIONS (10)
  - Immune-mediated hypophysitis [Unknown]
  - Headache [Unknown]
  - Pyrexia [Unknown]
  - Altered state of consciousness [Recovering/Resolving]
  - Central hypothyroidism [Unknown]
  - Pituitary enlargement [Recovering/Resolving]
  - Lymphocytic hypophysitis [Unknown]
  - Pancreatitis acute [Unknown]
  - Diabetic ketoacidosis [Unknown]
  - Fulminant type 1 diabetes mellitus [Unknown]
